FAERS Safety Report 5955596-5 (Version None)
Quarter: 2008Q4

REPORT INFORMATION
  Report Type: 
  Country: None (occurrence: None)
  Receive Date: 20081117
  Receipt Date: 20081106
  Transmission Date: 20090506
  Serious: Yes (Other)
  Sender: FDA-Public Use
  Company Number: GB-PFIZER INC-2008086789

PATIENT
  Sex: Female
  Weight: 69.5 kg

DRUGS (2)
  1. CHAMPIX [Suspect]
     Indication: SMOKING CESSATION THERAPY
     Route: 048
     Dates: start: 20080116, end: 20080222
  2. MEDROXYPROGESTERONE ACETATE [Concomitant]
     Route: 030
     Dates: start: 20070731

REACTIONS (4)
  - AGORAPHOBIA [None]
  - DEPRESSED MOOD [None]
  - INTENTIONAL SELF-INJURY [None]
  - MOOD SWINGS [None]
